FAERS Safety Report 18000640 (Version 8)
Quarter: 2021Q3

REPORT INFORMATION
  Report Type: Report from Study
  Country: NL (occurrence: NL)
  Receive Date: 20200709
  Receipt Date: 20210722
  Transmission Date: 20211014
  Serious: Yes (Other)
  Sender: FDA-Public Use
  Company Number: NL-AMGEN-NLDSL2020080519

PATIENT
  Age: 74 Year
  Sex: Male

DRUGS (14)
  1. FENOTEROL;IPRATROPIUM [Concomitant]
     Active Substance: FENOTEROL\IPRATROPIUM
     Dosage: 50/20UG/DO 200DO INH, 4D2DO
  2. FUSIDIC ACID [Concomitant]
     Active Substance: FUSIDIC ACID
     Dosage: CREAM 20MG/G UNK
  3. GOSERELINE [Concomitant]
     Active Substance: GOSERELIN
     Dosage: 10.8 MILLIGRAM, Q3MO
  4. BUSERELINE [Concomitant]
     Indication: PROSTATE CANCER
     Dosage: 9.45 MILLIGRAM, Q3MO
  5. FUSIDIC ACID [Concomitant]
     Active Substance: FUSIDIC ACID
     Dosage: 20 MILLIGRAM PER GRAM, QOD
  6. BECLOMETASONE;FORMOTEROL [Concomitant]
     Active Substance: BECLOMETHASONE\FORMOTEROL
     Indication: CHRONIC OBSTRUCTIVE PULMONARY DISEASE
     Dosage: 200/6UG/DO 120DO I, 2D2DO
  7. DEXTRAN 70;HYPROMELLOSE [Concomitant]
     Dosage: /3MG/ML FL 15ML 4XD 1 DROP
  8. XGEVA [Suspect]
     Active Substance: DENOSUMAB
     Indication: PROPHYLAXIS
     Dosage: 120 MILLIGRAM, Q4WK
     Route: 058
     Dates: start: 20190624
  9. CLOPIDOGREL [Concomitant]
     Active Substance: CLOPIDOGREL BISULFATE
     Dosage: 75 MILLIGRAM, QD
  10. XGEVA [Suspect]
     Active Substance: DENOSUMAB
     Indication: METASTASES TO BONE
     Dosage: 120 MILLIGRAM, Q4WK
     Route: 058
     Dates: start: 20200722, end: 20200819
  11. CALCIUM CARBONATE;COLECALCIFEROL [Concomitant]
     Active Substance: CALCIUM CARBONATE\CHOLECALCIFEROL
     Indication: PROSTATE CANCER
     Dosage: 1,25G/800IE (500MG CA), QD
  12. DEXTRAN 70;HYPROMELLOSE [Concomitant]
     Dosage: 1/3MG/ML FL 15ML, BID
  13. TIOTROPIUM [Concomitant]
     Active Substance: TIOTROPIUM
     Dosage: 2,5UG/DO PATR 60DO, QD
  14. HYPROMELLOSE [Concomitant]
     Active Substance: HYPROMELLOSES
     Dosage: 3,2MG/ML FL 10ML 4D1DR WHEN NEEDED

REACTIONS (5)
  - Osteonecrosis of jaw [Unknown]
  - Pain in jaw [Recovered/Resolved]
  - Osteomyelitis [Unknown]
  - Platelet count decreased [Unknown]
  - Osteitis [Not Recovered/Not Resolved]

NARRATIVE: CASE EVENT DATE: 20200301
